FAERS Safety Report 9720052 (Version 1)
Quarter: 2013Q4

REPORT INFORMATION
  Report Type: Spontaneous
  Country: CH (occurrence: CH)
  Receive Date: 20131128
  Receipt Date: 20131128
  Transmission Date: 20140711
  Serious: Yes (Hospitalization)
  Sender: FDA-Public Use
  Company Number: CH-SA-2013SA121199

PATIENT
  Age: 75 Year
  Sex: Male

DRUGS (9)
  1. PLAVIX [Suspect]
     Indication: PRODUCT USED FOR UNKNOWN INDICATION
     Dosage: STRENGTH: 75 MG
     Route: 048
  2. SINTROM [Suspect]
     Indication: PRODUCT USED FOR UNKNOWN INDICATION
     Dosage: SUSPENSION OF ANTICOAGULATION IN THE ACUTE PHASE
     Route: 048
     Dates: end: 20131021
  3. ATACAND [Concomitant]
  4. TOREM [Concomitant]
  5. ZANIDIP [Concomitant]
  6. DIAMICRON [Concomitant]
  7. PRAVASTATIN SODIUM [Concomitant]
  8. PANTOZOL [Concomitant]
  9. DUODART [Concomitant]

REACTIONS (5)
  - Angina pectoris [Recovered/Resolved]
  - Dyspnoea [Recovered/Resolved]
  - Gastric ulcer [Recovered/Resolved]
  - Anaemia [Recovering/Resolving]
  - Melaena [Recovered/Resolved]
